FAERS Safety Report 5684891-2 (Version None)
Quarter: 2008Q1

REPORT INFORMATION
  Report Type: 
  Country: None (occurrence: None)
  Receive Date: 20080328
  Receipt Date: 20071205
  Transmission Date: 20080703
  Serious: Yes (Hospitalization)
  Sender: FDA-Public Use
  Company Number: US-BRISTOL-MYERS SQUIBB COMPANY-13984323

PATIENT
  Age: 48 Year
  Sex: Male

DRUGS (6)
  1. ERBITUX [Suspect]
     Indication: SQUAMOUS CELL CARCINOMA
     Dosage: 6/13/07STPD-49MIN10/17/07-800MGIV,STPD@200CC,AFTER30MIN@50CC/HR 15MIN100 CC/HR 15M, 200CC/HR.
     Route: 042
     Dates: start: 20070613, end: 20070613
  2. CARBOPLATIN [Suspect]
     Indication: SQUAMOUS CELL CARCINOMA
     Dosage: 924MG IV AS PREMEDICATION FOR THE NEXT CYCLE INFUSION OF CETUXIMAB.
     Route: 042
  3. FLUOROURACIL [Suspect]
     Indication: SQUAMOUS CELL CARCINOMA
     Route: 042
  4. DECADRON [Concomitant]
     Dosage: ALSO GIVEN AS PREMEDICATION - 20MG IV.
     Route: 042
  5. BENADRYL [Concomitant]
     Dosage: ALSO GIVEN AS PREMEDICATION- 50MG IV.
     Route: 042
  6. SOLU-MEDROL [Concomitant]
     Dosage: ALSO GEVEN 62.5 MG AS TREATMENT FOR NUMBNESS LIPS.
     Route: 042

REACTIONS (5)
  - DYSPNOEA [None]
  - HYPOAESTHESIA ORAL [None]
  - INFUSION RELATED REACTION [None]
  - PERIORBITAL OEDEMA [None]
  - RASH [None]
